FAERS Safety Report 5418010-4 (Version None)
Quarter: 2007Q3

REPORT INFORMATION
  Report Type: 
  Country: None (occurrence: None)
  Receive Date: 20070817
  Receipt Date: 20070813
  Transmission Date: 20080115
  Serious: Yes (Life-Threatening)
  Sender: FDA-Public Use
  Company Number: KR-SANOFI-SYNTHELABO-F01200701015

PATIENT
  Sex: Male
  Weight: 59 kg

DRUGS (3)
  1. XELODA [Suspect]
     Route: 048
     Dates: start: 20070710, end: 20070731
  2. CETUXIMAB [Suspect]
     Route: 042
     Dates: start: 20070710, end: 20070731
  3. ELOXATIN [Suspect]
     Indication: GASTRIC CANCER
     Route: 042
     Dates: start: 20070710, end: 20070731

REACTIONS (2)
  - MENTAL STATUS CHANGES [None]
  - PYREXIA [None]
